FAERS Safety Report 16139966 (Version 1)
Quarter: 2019Q2

REPORT INFORMATION
  Report Type: Spontaneous
  Country: US (occurrence: US)
  Receive Date: 20190401
  Receipt Date: 20190401
  Transmission Date: 20190711
  Serious: No
  Sender: FDA-Public Use
  Company Number: US-BAUSCH-BL-2019-008247

PATIENT
  Age: 36 Year
  Sex: Female
  Weight: 56.75 kg

DRUGS (11)
  1. REPHRESH ARTIFICIAL TEARS (CARBOMER\GLYCERIN\POLYCARBOPHIL) [Suspect]
     Active Substance: CARBOMER\GLYCERIN\POLYCARBOPHIL
     Route: 065
     Dates: start: 2019
  2. TIMOPTIC [Suspect]
     Active Substance: TIMOLOL MALEATE
     Indication: UVEITIS
     Route: 047
     Dates: end: 201812
  3. LOTEMAX [Suspect]
     Active Substance: LOTEPREDNOL ETABONATE
     Indication: UVEITIS
     Dosage: APPROXIMATELY 3 YEARS AGO,?IN THE RIGHT EYE
     Route: 047
     Dates: end: 201812
  4. VITAMIN D2 [Concomitant]
     Active Substance: ERGOCALCIFEROL
     Indication: PRODUCT USED FOR UNKNOWN INDICATION
  5. LOTEMAX [Suspect]
     Active Substance: LOTEPREDNOL ETABONATE
     Route: 047
     Dates: start: 20190312
  6. GENTEAL MILD [Suspect]
     Active Substance: HYPROMELLOSE 2910 (4000 MPA.S)
     Indication: PRODUCT USED FOR UNKNOWN INDICATION
     Route: 065
  7. REPHRESH ARTIFICIAL TEARS (CARBOMER\GLYCERIN\POLYCARBOPHIL) [Suspect]
     Active Substance: CARBOMER\GLYCERIN\POLYCARBOPHIL
     Indication: PRODUCT USED FOR UNKNOWN INDICATION
     Route: 065
     Dates: end: 201812
  8. MAGNESIUM [Concomitant]
     Active Substance: MAGNESIUM
     Indication: PRODUCT USED FOR UNKNOWN INDICATION
  9. TIMOPTIC [Suspect]
     Active Substance: TIMOLOL MALEATE
     Route: 047
     Dates: start: 201901, end: 2019
  10. HUMIRA [Concomitant]
     Active Substance: ADALIMUMAB
     Indication: PRODUCT USED FOR UNKNOWN INDICATION
  11. CURCUMIN [Concomitant]
     Active Substance: CURCUMIN
     Indication: PRODUCT USED FOR UNKNOWN INDICATION

REACTIONS (3)
  - Eye allergy [Not Recovered/Not Resolved]
  - Skin swelling [Not Recovered/Not Resolved]
  - Skin exfoliation [Not Recovered/Not Resolved]

NARRATIVE: CASE EVENT DATE: 201812
